FAERS Safety Report 10012078 (Version 1)
Quarter: 2014Q1

REPORT INFORMATION
  Report Type: Spontaneous
  Country: US (occurrence: None)
  Receive Date: 20140312
  Receipt Date: 20140312
  Transmission Date: 20141002
  Serious: Yes (Hospitalization)
  Sender: FDA-Public Use
  Company Number: BR14-063-AE

PATIENT
  Age: 9 Month
  Sex: 0

DRUGS (1)
  1. BUPRENORPHINE/NALOXONE [Suspect]
     Indication: PRODUCT USED FOR UNKNOWN INDICATION
     Route: 048

REACTIONS (2)
  - Exposure via ingestion [None]
  - Victim of chemical submission [None]
